FAERS Safety Report 8366105-8 (Version None)
Quarter: 2012Q2

REPORT INFORMATION
  Report Type: 
  Country: None (occurrence: None)
  Receive Date: 20120515
  Receipt Date: 20120430
  Transmission Date: 20120825
  Serious: Yes (Death)
  Sender: FDA-Public Use
  Company Number: 201205000014

PATIENT
  Sex: Male

DRUGS (2)
  1. INOMAX [Suspect]
     Indication: PULMONARY ARTERIAL HYPERTENSION
     Dosage: 40 PPM, CONTINUOUS, INHALATION
     Route: 055
     Dates: start: 20120428, end: 20120429
  2. INOMAX [Suspect]
     Indication: OXYGEN SATURATION DECREASED
     Dosage: 40 PPM, CONTINUOUS, INHALATION
     Route: 055
     Dates: start: 20120428, end: 20120429

REACTIONS (1)
  - OXYGEN SATURATION DECREASED [None]
